FAERS Safety Report 7648147-0 (Version None)
Quarter: 2011Q3

REPORT INFORMATION
  Report Type: 
  Country: None (occurrence: None)
  Receive Date: 20110801
  Receipt Date: 20110725
  Transmission Date: 20111222
  Serious: Yes (Other)
  Sender: FDA-Public Use
  Company Number: FR-PFIZER INC-2011167906

PATIENT
  Sex: Male

DRUGS (9)
  1. BACTRIM [Suspect]
     Dosage: UNK
  2. VALGANCICLOVIR [Suspect]
  3. TRUVADA [Suspect]
     Indication: HIV TEST POSITIVE
  4. CLARITHROMYCIN [Suspect]
     Dosage: UNK
     Dates: start: 20100301, end: 20100927
  5. RIMIFON [Suspect]
     Dosage: UNK
     Dates: start: 20100301, end: 20100927
  6. VALGANCICLOVIR [Suspect]
  7. RIFABUTIN [Suspect]
     Dosage: UNK
     Dates: start: 20100301, end: 20100927
  8. MYAMBUTOL [Suspect]
  9. KALETRA [Suspect]
     Indication: HIV TEST POSITIVE

REACTIONS (7)
  - HYPOSPADIAS [None]
  - MICROTIA [None]
  - VENTRICULAR SEPTAL DEFECT [None]
  - ATRIAL SEPTAL DEFECT [None]
  - KIDNEY MALFORMATION [None]
  - OESOPHAGEAL ATRESIA [None]
  - POLYDACTYLY [None]
